FAERS Safety Report 7681815-3 (Version None)
Quarter: 2011Q3

REPORT INFORMATION
  Report Type: 
  Country: None (occurrence: None)
  Receive Date: 20110812
  Receipt Date: 20110803
  Transmission Date: 20111222
  Serious: Yes (Hospitalization)
  Sender: FDA-Public Use
  Company Number: US-ASTRAZENECA-2011SE40384

PATIENT
  Age: 9 Year
  Sex: Male
  Weight: 47.6 kg

DRUGS (4)
  1. SINGULAIR [Concomitant]
  2. XOPONEX [Concomitant]
  3. PULMICORT [Suspect]
     Route: 055
  4. PULMICORT [Suspect]
     Indication: ASTHMA
     Route: 055
     Dates: start: 20080101

REACTIONS (5)
  - CROUP INFECTIOUS [None]
  - HYPERSENSITIVITY [None]
  - COUGH [None]
  - GASTROINTESTINAL DISORDER [None]
  - PSYCHOSOMATIC DISEASE [None]
